FAERS Safety Report 7229865-5 (Version None)
Quarter: 2011Q1

REPORT INFORMATION
  Report Type: 
  Country: None (occurrence: None)
  Receive Date: 20110117
  Receipt Date: 20110112
  Transmission Date: 20110831
  Serious: Yes (Other)
  Sender: FDA-Public Use
  Company Number: DK-PFIZER INC-2010157670

PATIENT
  Age: 70 Year
  Sex: Male

DRUGS (2)
  1. ZOLEDRONIC ACID [Suspect]
     Indication: METASTASES TO BONE
     Dosage: 4 MG, EVERY 6 WEEKS
     Dates: start: 20100301, end: 20100301
  2. SUNITINIB MALATE [Suspect]
     Indication: METASTATIC RENAL CELL CARCINOMA
     Dosage: 25-50 MG 4/2 SCHEDULE
     Route: 048
     Dates: start: 20091207

REACTIONS (1)
  - OSTEONECROSIS OF JAW [None]
